FAERS Safety Report 7346138-0 (Version None)
Quarter: 2011Q1

REPORT INFORMATION
  Report Type: 
  Country: None (occurrence: None)
  Receive Date: 20110311
  Receipt Date: 20110224
  Transmission Date: 20110831
  Serious: Yes (Other)
  Sender: FDA-Public Use
  Company Number: US-BAYER-200929397NA

PATIENT
  Sex: Female
  Weight: 67.159 kg

DRUGS (23)
  1. MINOXIDIL [Concomitant]
  2. TENORMIN [Concomitant]
  3. PROHANCE [Suspect]
     Indication: NUCLEAR MAGNETIC RESONANCE IMAGING
  4. ALDACTONE [Concomitant]
  5. VASOTEC [Concomitant]
  6. ULTRAVIST 300 [Concomitant]
     Indication: COMPUTERISED TOMOGRAM ABDOMEN
     Route: 042
     Dates: start: 20071030, end: 20071030
  7. OPTIMARK [Suspect]
     Indication: NUCLEAR MAGNETIC RESONANCE IMAGING
  8. ISOVUE-128 [Concomitant]
     Indication: ANGIOGRAM
     Dates: start: 20071018, end: 20071018
  9. CORTICOSTEROIDS [Concomitant]
     Indication: PREMEDICATION
     Dates: start: 20071001, end: 20071001
  10. MAGNEVIST [Suspect]
     Indication: NUCLEAR MAGNETIC RESONANCE IMAGING
     Dates: start: 20010403, end: 20010403
  11. MULTIHANCE [Suspect]
     Indication: NUCLEAR MAGNETIC RESONANCE IMAGING
  12. COZAAR [Concomitant]
  13. CATAPRES [Concomitant]
  14. SENSIPAR [Concomitant]
  15. TOPROL-XL [Concomitant]
  16. ISOSORBIDE DINITRATE [Concomitant]
  17. HECTOROL [Concomitant]
  18. OMNISCAN [Suspect]
     Indication: NUCLEAR MAGNETIC RESONANCE IMAGING
  19. NEPHROCAPS [Concomitant]
  20. DIOVAN [Concomitant]
  21. RENAGEL [Concomitant]
  22. ZEMPLAR [Concomitant]
  23. NORVASC [Concomitant]

REACTIONS (5)
  - FIBROSIS [None]
  - PAIN [None]
  - NEPHROGENIC SYSTEMIC FIBROSIS [None]
  - SKIN TIGHTNESS [None]
  - SKIN SWELLING [None]
